FAERS Safety Report 18620577 (Version 1)
Quarter: 2020Q4

REPORT INFORMATION
  Report Type: Spontaneous
  Country: CA (occurrence: CA)
  Receive Date: 20201215
  Receipt Date: 20201215
  Transmission Date: 20210114
  Serious: Yes (Other)
  Sender: FDA-Public Use
  Company Number: CA-BAYER-2020-270119

PATIENT
  Age: 58 Year
  Sex: Female

DRUGS (11)
  1. ACETAMINOPHEN. [Concomitant]
     Active Substance: ACETAMINOPHEN
  2. ETIDRONAT [Concomitant]
  3. METHYLPREDNISOLONE. [Concomitant]
     Active Substance: METHYLPREDNISOLONE
  4. DIPHENHYDRAMINE. [Concomitant]
     Active Substance: DIPHENHYDRAMINE
  5. RITUXIMAB. [Suspect]
     Active Substance: RITUXIMAB
     Indication: SYSTEMIC LUPUS ERYTHEMATOSUS
     Dosage: 1000 UG/L
     Route: 042
  6. LASIX [Concomitant]
     Active Substance: FUROSEMIDE
  7. MORPHINE SULFATE. [Concomitant]
     Active Substance: MORPHINE SULFATE
  8. ALEVE [Suspect]
     Active Substance: NAPROXEN SODIUM
  9. LEVODOPA [Concomitant]
     Active Substance: LEVODOPA
  10. HYDROXYCHLOROQUINE [Concomitant]
     Active Substance: HYDROXYCHLOROQUINE
  11. PREDNISONE. [Concomitant]
     Active Substance: PREDNISONE

REACTIONS (3)
  - Hernia [Not Recovered/Not Resolved]
  - Arthralgia [Not Recovered/Not Resolved]
  - Drug ineffective [Not Recovered/Not Resolved]
